FAERS Safety Report 15313208 (Version 1)
Quarter: 2018Q3

REPORT INFORMATION
  Report Type: Spontaneous
  Country: US (occurrence: US)
  Receive Date: 20180823
  Receipt Date: 20180823
  Transmission Date: 20181010
  Serious: No
  Sender: FDA-Public Use
  Company Number: US-VIFOR (INTERNATIONAL) INC.-VIT-2018-08246

PATIENT
  Sex: Male

DRUGS (12)
  1. VELTASSA [Suspect]
     Active Substance: PATIROMER
     Indication: HYPERKALAEMIA
  2. ULORIC [Concomitant]
     Active Substance: FEBUXOSTAT
  3. ACETYLSALICYLIC ACID [Concomitant]
     Active Substance: ASPIRIN
  4. GLIPIZIDE. [Concomitant]
     Active Substance: GLIPIZIDE
  5. AMLODIPINE BESILATE [Concomitant]
     Active Substance: AMLODIPINE BESYLATE
  6. METOPROLOL TARTRATE. [Concomitant]
     Active Substance: METOPROLOL TARTRATE
  7. COLCHICINE. [Concomitant]
     Active Substance: COLCHICINE
  8. FLUOXETINE HYDROCHLORIDE. [Concomitant]
     Active Substance: FLUOXETINE HYDROCHLORIDE
  9. ZETIA [Concomitant]
     Active Substance: EZETIMIBE
  10. LORAZEPAM. [Concomitant]
     Active Substance: LORAZEPAM
  11. WELLBUTRIN [Concomitant]
     Active Substance: BUPROPION HYDROCHLORIDE
  12. HYDROXYCHLOROQUINE SULFATE. [Concomitant]
     Active Substance: HYDROXYCHLOROQUINE SULFATE

REACTIONS (1)
  - Constipation [Unknown]
